FAERS Safety Report 16174517 (Version 1)
Quarter: 2019Q2

REPORT INFORMATION
  Report Type: Report from Study
  Country: None (occurrence: BR)
  Receive Date: 20190409
  Receipt Date: 20190409
  Transmission Date: 20190711
  Serious: Yes (Other)
  Sender: FDA-Public Use
  Company Number: BR-ABBVIE-18K-020-2576331-00

PATIENT
  Age: 37 Year
  Sex: Female
  Weight: 60 kg

DRUGS (6)
  1. AMOXICILLIN CLAVULANIC ACID [Concomitant]
     Active Substance: AMOXICILLIN\CLAVULANIC ACID
     Indication: PRODUCT USED FOR UNKNOWN INDICATION
  2. PREDNISOLONE. [Concomitant]
     Active Substance: PREDNISOLONE
     Indication: PRODUCT USED FOR UNKNOWN INDICATION
  3. HUMIRA [Suspect]
     Active Substance: ADALIMUMAB
     Indication: CROHN^S DISEASE
     Route: 058
     Dates: start: 20180702
  4. BEROTEC [Concomitant]
     Active Substance: FENOTEROL HYDROBROMIDE
     Indication: BRONCHITIS
  5. HUMIRA [Suspect]
     Active Substance: ADALIMUMAB
     Indication: COLITIS ULCERATIVE
  6. AMOXICILLIN. [Concomitant]
     Active Substance: AMOXICILLIN
     Indication: PRODUCT USED FOR UNKNOWN INDICATION

REACTIONS (22)
  - Skin disorder [Unknown]
  - Dermatitis [Unknown]
  - Asthmatic crisis [Unknown]
  - Lacrimation increased [Unknown]
  - Crohn^s disease [Unknown]
  - Malaise [Unknown]
  - Allergic sinusitis [Not Recovered/Not Resolved]
  - Rhinitis [Unknown]
  - Bronchitis [Unknown]
  - Intestinal ulcer [Unknown]
  - Acne pustular [Not Recovered/Not Resolved]
  - Alopecia [Not Recovered/Not Resolved]
  - Musculoskeletal pain [Not Recovered/Not Resolved]
  - Sneezing [Unknown]
  - Mobility decreased [Unknown]
  - Pain [Not Recovered/Not Resolved]
  - Skin mass [Unknown]
  - Sensitivity to weather change [Unknown]
  - Arthritis [Not Recovered/Not Resolved]
  - Loss of personal independence in daily activities [Unknown]
  - Arthropathy [Unknown]
  - Alopecia [Unknown]

NARRATIVE: CASE EVENT DATE: 2018
